FAERS Safety Report 11732971 (Version 1)
Quarter: 2015Q4

REPORT INFORMATION
  Report Type: Spontaneous
  Country: US (occurrence: US)
  Receive Date: 20151110
  Receipt Date: 20151110
  Transmission Date: 20160304
  Serious: No
  Sender: FDA-Public Use
  Company Number: US-ELI_LILLY_AND_COMPANY-US201205001273

PATIENT
  Sex: Female

DRUGS (3)
  1. FORTEO [Suspect]
     Active Substance: TERIPARATIDE
     Indication: OSTEOPOROSIS
     Dosage: 20 UG, QD
  2. ANALGESICS [Concomitant]
     Active Substance: UNSPECIFIED INGREDIENT
  3. FORTEO [Suspect]
     Active Substance: TERIPARATIDE
     Dosage: 20 UG, QD
     Dates: end: 20120327

REACTIONS (7)
  - Asthenia [Not Recovered/Not Resolved]
  - Dizziness [Unknown]
  - Muscular weakness [Unknown]
  - Arthralgia [Not Recovered/Not Resolved]
  - Arthritis [Unknown]
  - Fatigue [Not Recovered/Not Resolved]
  - Bone pain [Unknown]
